FAERS Safety Report 20373995 (Version 2)
Quarter: 2022Q1

REPORT INFORMATION
  Report Type: Report from Study
  Country: HN (occurrence: HN)
  Receive Date: 20220125
  Receipt Date: 20220315
  Transmission Date: 20220424
  Serious: Yes (Other)
  Sender: FDA-Public Use
  Company Number: HN-NOVARTISPH-NVSC2022HN012475

PATIENT
  Age: 69 Year
  Sex: Female

DRUGS (4)
  1. METFORMIN HYDROCHLORIDE\VILDAGLIPTIN [Suspect]
     Active Substance: METFORMIN HYDROCHLORIDE\VILDAGLIPTIN
     Indication: Diabetes mellitus
     Dosage: 50/1000 MG
     Route: 065
  2. HYDROCHLOROTHIAZIDE\VALSARTAN [Suspect]
     Active Substance: HYDROCHLOROTHIAZIDE\VALSARTAN
     Indication: Cardiac disorder
     Dosage: 320/25 MG
     Route: 065
     Dates: start: 2021, end: 202202
  3. SACUBITRIL\VALSARTAN [Suspect]
     Active Substance: SACUBITRIL\VALSARTAN
     Indication: Cardiac disorder
     Dosage: 0.5 DOSAGE FORM, BID, HALF A TABLET IN THE MORNING AND HALF A TABLET AT NIGHT, STARTED 4 MONTHS AGO
     Route: 065
     Dates: start: 2021
  4. SACUBITRIL\VALSARTAN [Suspect]
     Active Substance: SACUBITRIL\VALSARTAN
     Dosage: 200 MG
     Route: 065
     Dates: start: 2021, end: 202202

REACTIONS (7)
  - Diabetes mellitus [Unknown]
  - Dysstasia [Unknown]
  - Blood pressure fluctuation [Unknown]
  - Peripheral swelling [Unknown]
  - Wrong technique in product usage process [Unknown]
  - Incorrect dose administered [Unknown]
  - Product use in unapproved indication [Unknown]

NARRATIVE: CASE EVENT DATE: 20210101
